FAERS Safety Report 4474609-3 (Version None)
Quarter: 2004Q4

REPORT INFORMATION
  Report Type: 
  Country: None (occurrence: None)
  Receive Date: 20041014
  Receipt Date: 20041008
  Transmission Date: 20050328
  Serious: Yes (Hospitalization)
  Sender: FDA-Public Use
  Company Number: PHBS2004JP13563

PATIENT
  Age: 60 Year
  Sex: Male

DRUGS (5)
  1. LAMISIL [Suspect]
     Indication: TINEA BLANCA
     Dosage: 125 MG/DAY
     Route: 048
     Dates: start: 20040801, end: 20040908
  2. LEBENIN [Concomitant]
     Route: 048
  3. DEPAKENE [Concomitant]
     Route: 048
  4. PHENOBAL [Concomitant]
     Route: 048
  5. RIVOTRIL [Concomitant]
     Route: 048

REACTIONS (2)
  - C-REACTIVE PROTEIN INCREASED [None]
  - ILEUS PARALYTIC [None]
